FAERS Safety Report 14740515 (Version 1)
Quarter: 2018Q2

REPORT INFORMATION
  Report Type: Spontaneous
  Country: US (occurrence: US)
  Receive Date: 20180404
  Receipt Date: 20180404
  Transmission Date: 20180711
  Serious: Yes (Disabling)
  Sender: FDA-Public Use
  Company Number: None

PATIENT
  Age: 2 Year
  Sex: Male
  Weight: 13.05 kg

DRUGS (1)
  1. MIRALAX [Suspect]
     Active Substance: POLYETHYLENE GLYCOL 3350
     Indication: CONSTIPATION
     Dosage: ?          QUANTITY:2 TEASPOON(S);?
     Route: 048

REACTIONS (10)
  - Disturbance in attention [None]
  - Sensory disturbance [None]
  - Nasopharyngitis [None]
  - Psychomotor hyperactivity [None]
  - Dysphagia [None]
  - Aggression [None]
  - Abnormal behaviour [None]
  - Malaise [None]
  - Anxiety [None]
  - Tongue erythema [None]

NARRATIVE: CASE EVENT DATE: 20180130
